FAERS Safety Report 15104275 (Version 1)
Quarter: 2018Q2

REPORT INFORMATION
  Report Type: Spontaneous
  Country: US (occurrence: US)
  Receive Date: 20180611
  Receipt Date: 20180611
  Transmission Date: 20180711
  Serious: Yes (Other)
  Sender: FDA-Public Use
  Company Number: None

PATIENT
  Age: 79 Year
  Sex: Male
  Weight: 66.6 kg

DRUGS (12)
  1. ASPIRIN. [Concomitant]
     Active Substance: ASPIRIN
  2. GREEN TEA EXTRACT [Concomitant]
  3. PRAVASTATIN. [Concomitant]
     Active Substance: PRAVASTATIN
  4. LEVO-T [Concomitant]
     Active Substance: LEVOTHYROXINE SODIUM
  5. OXYCODONE [Concomitant]
     Active Substance: OXYCODONE
  6. TRAZODONE [Concomitant]
     Active Substance: TRAZODONE HYDROCHLORIDE
  7. INLYTA [Suspect]
     Active Substance: AXITINIB
     Indication: RENAL CANCER
     Route: 048
     Dates: start: 20170831
  8. MAG-200 [Concomitant]
  9. CITRACAL [Concomitant]
     Active Substance: CALCIUM CITRATE
  10. CYANOCOBALAMIN. [Concomitant]
     Active Substance: CYANOCOBALAMIN
  11. ZOLPIDEM [Concomitant]
     Active Substance: ZOLPIDEM\ZOLPIDEM TARTRATE
  12. MEGESTROL [Concomitant]
     Active Substance: MEGESTROL

REACTIONS (3)
  - Balance disorder [None]
  - Fatigue [None]
  - Visual impairment [None]
